FAERS Safety Report 6046408-2 (Version None)
Quarter: 2009Q1

REPORT INFORMATION
  Report Type: 
  Country: None (occurrence: None)
  Receive Date: 20090121
  Receipt Date: 20090121
  Transmission Date: 20090719
  Serious: No
  Sender: FDA-Public Use
  Company Number: None

PATIENT
  Age: 77 Year
  Sex: Male

DRUGS (1)
  1. PANITUMUMAB [Suspect]
     Indication: COLON CANCER METASTATIC
     Dosage: 6MG/KG,600MG MG OTHER IV
     Route: 042
     Dates: start: 20080519, end: 20081001

REACTIONS (1)
  - HYPOMAGNESAEMIA [None]
